FAERS Safety Report 7967820-8 (Version None)
Quarter: 2011Q4

REPORT INFORMATION
  Report Type: 
  Country: None (occurrence: None)
  Receive Date: 20111207
  Receipt Date: 20111115
  Transmission Date: 20120403
  Serious: Yes (Other)
  Sender: FDA-Public Use
  Company Number: 2011S1001585

PATIENT
  Age: 56 Year
  Sex: Female

DRUGS (4)
  1. AMARYL [Suspect]
     Indication: DIABETES MELLITUS
     Dosage: 2 MG;BID;PO
     Route: 048
     Dates: start: 20090206
  2. BASEN (VOGLIBOSE) [Suspect]
     Indication: DIABETES MELLITUS
     Dosage: 0.9 MG;TID;PO
     Route: 048
     Dates: start: 20090206, end: 20110928
  3. LIVALO [Suspect]
     Indication: HYPERCHOLESTEROLAEMIA
     Dosage: 1 MG;1X;PO
     Route: 048
     Dates: start: 20091014, end: 20110928
  4. BOFUTSUSHOSAN (BOFUTSUSHOSAN) [Suspect]
     Indication: CONSTIPATION
     Dosage: 7.5 MG;TID;PO
     Route: 048
     Dates: start: 20100623, end: 20110928

REACTIONS (1)
  - LIVER FUNCTION TEST ABNORMAL [None]
